FAERS Safety Report 8826512 (Version 2)
Quarter: 2012Q4

REPORT INFORMATION
  Report Type: 
  Country: JP (occurrence: JP)
  Receive Date: 20121008
  Receipt Date: 20121109
  Transmission Date: 20130627
  Serious: Yes (Other)
  Sender: FDA-Public Use
  Company Number: PHHY2012JP086852

PATIENT
  Sex: Female
  Weight: 37.9 kg

DRUGS (2)
  1. RIVASTIGMIN [Suspect]
     Indication: DEMENTIA ALZHEIMER^S TYPE
     Dosage: 4.5 mg / 24 hrs, QD
     Route: 062
     Dates: start: 20120309, end: 20120322
  2. YOKUKAN-SAN [Concomitant]
     Dates: start: 20120309, end: 20120406

REACTIONS (2)
  - Cardiac failure acute [Recovered/Resolved]
  - Supraventricular extrasystoles [Recovered/Resolved]
